FAERS Safety Report 5301139-9 (Version None)
Quarter: 2007Q2

REPORT INFORMATION
  Report Type: 
  Country: None (occurrence: None)
  Receive Date: 20070418
  Receipt Date: 20070411
  Transmission Date: 20071010
  Serious: Yes (Other)
  Sender: FDA-Public Use
  Company Number: US-AMGEN-US203373

PATIENT
  Sex: Female
  Weight: 54.9 kg

DRUGS (2)
  1. ENBREL [Suspect]
     Indication: RHEUMATOID ARTHRITIS
     Route: 058
     Dates: start: 20020101, end: 20060601
  2. METHOTREXATE [Concomitant]
     Dates: start: 20020101

REACTIONS (1)
  - LYMPH NODE TUBERCULOSIS [None]
